FAERS Safety Report 15541757 (Version 1)
Quarter: 2018Q4

REPORT INFORMATION
  Report Type: Spontaneous
  Country: CA (occurrence: CA)
  Receive Date: 20181023
  Receipt Date: 20181023
  Transmission Date: 20190205
  Serious: Yes (Hospitalization, Other)
  Sender: FDA-Public Use
  Company Number: CA-BAYER-2018-196215

PATIENT
  Age: 65 Year
  Sex: Female

DRUGS (4)
  1. CLOPIDOGREL [Interacting]
     Active Substance: CLOPIDOGREL BISULFATE
     Indication: ANTIPLATELET THERAPY
     Dosage: 300 MG, UNK
  2. HEPARIN [Interacting]
     Active Substance: HEPARIN SODIUM
     Indication: ANTIPLATELET THERAPY
  3. TICAGRELOR. [Interacting]
     Active Substance: TICAGRELOR
     Indication: ANTIPLATELET THERAPY
  4. ACETYLSALICYLIC ACID({=100 MG) [Suspect]
     Active Substance: ASPIRIN
     Indication: ANTIPLATELET THERAPY
     Dosage: UNK

REACTIONS (3)
  - Haematoma [Recovered/Resolved]
  - Labelled drug-drug interaction medication error [None]
  - Capillary fragility increased [Recovered/Resolved]
